FAERS Safety Report 5512603-1 (Version None)
Quarter: 2007Q4

REPORT INFORMATION
  Report Type: 
  Country: None (occurrence: None)
  Receive Date: 20071108
  Receipt Date: 20071108
  Transmission Date: 20080405
  Serious: Yes (Hospitalization)
  Sender: FDA-Public Use
  Company Number: None

PATIENT
  Age: 67 Year
  Sex: Male
  Weight: 70 kg

DRUGS (15)
  1. SUTENT [Suspect]
     Indication: RENAL CELL CARCINOMA STAGE UNSPECIFIED
     Dosage: 50 MG DAILY PO
     Route: 048
     Dates: start: 20070427, end: 20070525
  2. FUROSEMIDE [Concomitant]
  3. CLONIDINE [Concomitant]
  4. GLYBURIDE [Concomitant]
  5. ROSIGLITAZONE [Concomitant]
  6. ASPIRIN [Concomitant]
  7. FERROUS SULFATE TAB [Concomitant]
  8. MINOXIDIL [Concomitant]
  9. METOPROLOL [Concomitant]
  10. POTASSIUM CHLORIDE [Concomitant]
  11. ROSUVASTATIN [Concomitant]
  12. AMLODIPINE [Concomitant]
  13. TAMSULOSIN HCL [Concomitant]
  14. GABAPENTIN [Concomitant]
  15. HYDROCODONE BITARTRATE AND ACETAMINOPHEN [Concomitant]

REACTIONS (6)
  - CHILLS [None]
  - DYSPNOEA [None]
  - FATIGUE [None]
  - HAEMATURIA [None]
  - PANCREATITIS ACUTE [None]
  - TREMOR [None]
